FAERS Safety Report 15206201 (Version 1)
Quarter: 2018Q4

REPORT INFORMATION
  Report Type: Spontaneous
  Country: DE (occurrence: DE)
  Receive Date: 20180727
  Receipt Date: 20180727
  Transmission Date: 20190204
  Serious: Yes (Hospitalization)
  Sender: FDA-Public Use
  Company Number: DE-HIKMA PHARMACEUTICALS USA INC.-DE-H14001-18-06021

PATIENT
  Age: 67 Year
  Weight: 93 kg

DRUGS (13)
  1. OXALIPLATIN. [Suspect]
     Active Substance: OXALIPLATIN
     Indication: COLORECTAL CANCER METASTATIC
     Route: 065
     Dates: start: 20130530, end: 20130729
  2. OXALIPLATIN. [Suspect]
     Active Substance: OXALIPLATIN
     Route: 042
     Dates: start: 20140113
  3. 5-FU [Concomitant]
     Active Substance: FLUOROURACIL
     Route: 042
     Dates: start: 20140113
  4. 5-FU [Concomitant]
     Active Substance: FLUOROURACIL
     Route: 040
     Dates: start: 20130304, end: 20130629
  5. FOLINIC ACID [Suspect]
     Active Substance: LEUCOVORIN
     Indication: COLORECTAL CANCER METASTATIC
     Route: 065
     Dates: start: 20130304, end: 20130708
  6. FOLINIC ACID [Suspect]
     Active Substance: LEUCOVORIN
     Route: 042
     Dates: start: 20140113
  7. BEVACIZUMAB. [Suspect]
     Active Substance: BEVACIZUMAB
     Route: 042
     Dates: start: 20140113
  8. 5-FU [Concomitant]
     Active Substance: FLUOROURACIL
     Route: 041
     Dates: start: 20130304, end: 20130625
  9. BEVACIZUMAB. [Suspect]
     Active Substance: BEVACIZUMAB
     Indication: COLORECTAL CANCER METASTATIC
     Route: 065
     Dates: start: 20130304, end: 20130729
  10. 5-FU [Concomitant]
     Active Substance: FLUOROURACIL
     Route: 042
     Dates: start: 20140113
  11. OXALIPLATIN. [Suspect]
     Active Substance: OXALIPLATIN
     Route: 065
     Dates: start: 20130304, end: 20130415
  12. 5-FU [Concomitant]
     Active Substance: FLUOROURACIL
     Indication: PRODUCT USED FOR UNKNOWN INDICATION
     Route: 041
     Dates: start: 20130708, end: 20130730
  13. MORPHINE SULFATE. [Concomitant]
     Active Substance: MORPHINE SULFATE
     Indication: PAIN
     Route: 058
     Dates: start: 20140109

REACTIONS (2)
  - Stomatitis [Recovered/Resolved]
  - Stoma site abscess [Recovered/Resolved]

NARRATIVE: CASE EVENT DATE: 20130626
